FAERS Safety Report 18526986 (Version 1)
Quarter: 2020Q4

REPORT INFORMATION
  Report Type: Spontaneous
  Country: JP (occurrence: JP)
  Receive Date: 20201120
  Receipt Date: 20201120
  Transmission Date: 20210114
  Serious: Yes (Hospitalization, Other)
  Sender: FDA-Public Use
  Company Number: JP-MACLEODS PHARMACEUTICALS US LTD-MAC2020029168

PATIENT

DRUGS (7)
  1. PREDNISOLONE. [Suspect]
     Active Substance: PREDNISOLONE
     Indication: ALOPECIA AREATA
     Dosage: 25 MILLIGRAM, QD
     Route: 065
     Dates: start: 201509
  2. PREDNISOLONE. [Suspect]
     Active Substance: PREDNISOLONE
     Dosage: 5 MILLIGRAM, QD
     Route: 065
  3. TRIAMCINOLONE ACETONIDE. [Suspect]
     Active Substance: TRIAMCINOLONE ACETONIDE
     Indication: ALOPECIA AREATA
     Dosage: 5 DOSAGE FORM, Q.W., INTRALESIONAL TRIAMCINOLONE ACETONIDE (40 MG) FIVE TIMES PER WEEK BETWEEN JANUA
     Route: 026
     Dates: start: 201101, end: 201102
  4. METHYLPREDNISOLONE. [Suspect]
     Active Substance: METHYLPREDNISOLONE
     Indication: ALOPECIA AREATA
     Dosage: 500 MILLIGRAM, QD, FIRST COURSE
     Route: 042
     Dates: start: 201305, end: 201305
  5. METHYLPREDNISOLONE. [Suspect]
     Active Substance: METHYLPREDNISOLONE
     Dosage: 500 MILLIGRAM, QD, THIRD COURSE
     Route: 042
  6. MOMETASONE FUROATE. [Suspect]
     Active Substance: MOMETASONE FUROATE
     Indication: ALOPECIA AREATA
     Dosage: UNK
     Route: 061
     Dates: start: 2010
  7. METHYLPREDNISOLONE. [Suspect]
     Active Substance: METHYLPREDNISOLONE
     Dosage: 500 MILLIGRAM, QD, SECOND COURSE
     Route: 042
     Dates: start: 201308, end: 201308

REACTIONS (1)
  - Osteonecrosis [Recovering/Resolving]

NARRATIVE: CASE EVENT DATE: 201602
